FAERS Safety Report 9468013 (Version 2)
Quarter: 2013Q3

REPORT INFORMATION
  Report Type: Spontaneous
  Country: AU (occurrence: AU)
  Receive Date: 20130821
  Receipt Date: 20130827
  Transmission Date: 20140515
  Serious: Yes (Death)
  Sender: FDA-Public Use
  Company Number: AU-PFIZER INC-2013239426

PATIENT
  Age: 82 Year
  Sex: Female

DRUGS (14)
  1. SERTRALINE HCL [Suspect]
     Dosage: 100 MG, 1X/DAY
     Route: 048
     Dates: end: 20130224
  2. MAXOLON [Suspect]
     Dosage: UNK
  3. ONDANSETRON HYDROCHLORIDE DIHYDRATE [Suspect]
     Dosage: UNK
  4. PROMETHAZINE HYDROCHLORIDE [Suspect]
     Dosage: UNK
  5. ASPIRIN [Concomitant]
     Dosage: UNK
  6. CODEINE [Concomitant]
     Dosage: UNK
  7. DOMPERIDONE [Concomitant]
     Dosage: UNK
  8. FENTANYL [Concomitant]
     Dosage: UNK
  9. METOPROLOL [Concomitant]
     Dosage: UNK
  10. OXYCODONE HYDROCHLORIDE [Concomitant]
     Dosage: UNK
  11. THYROXINE SODIUM [Concomitant]
     Dosage: UNK
  12. URSODEOXYCHOLIC ACID [Concomitant]
     Dosage: UNK
  13. PARACETAMOL [Concomitant]
     Dosage: UNK
  14. VITAMIN D NOS [Concomitant]
     Dosage: UNK

REACTIONS (2)
  - Pneumonia aspiration [Fatal]
  - Serotonin syndrome [Fatal]
